FAERS Safety Report 7866482-8 (Version None)
Quarter: 2011Q4

REPORT INFORMATION
  Report Type: 
  Country: None (occurrence: None)
  Receive Date: 20111028
  Receipt Date: 20110623
  Transmission Date: 20120403
  Serious: Yes (Hospitalization)
  Sender: FDA-Public Use
  Company Number: US-GLAXOSMITHKLINE-A0932752A

PATIENT
  Age: 86 Year
  Sex: Male

DRUGS (11)
  1. OXYGEN [Concomitant]
  2. ASPIRIN [Concomitant]
  3. FLONASE [Concomitant]
  4. NIASPAN [Concomitant]
  5. ADVAIR DISKUS 100/50 [Suspect]
     Indication: CHRONIC OBSTRUCTIVE PULMONARY DISEASE
     Dosage: 1PUFF TWICE PER DAY
     Route: 055
     Dates: start: 20080601, end: 20110501
  6. FLOVENT [Concomitant]
  7. ATENOLOL [Concomitant]
  8. OMEPRAZOLE [Concomitant]
  9. SIMVASTATIN [Concomitant]
  10. SPIRIVA [Concomitant]
  11. ZETIA [Concomitant]

REACTIONS (2)
  - CARDIAC FLUTTER [None]
  - HEART RATE INCREASED [None]
